FAERS Safety Report 4819684-9 (Version None)
Quarter: 2005Q4

REPORT INFORMATION
  Report Type: 
  Country: None (occurrence: None)
  Receive Date: 20051102
  Receipt Date: 20051020
  Transmission Date: 20060501
  Serious: Yes (Hospitalization)
  Sender: FDA-Public Use
  Company Number: 2005BI019549

PATIENT
  Age: 58 Year
  Sex: Female
  Weight: 98.8842 kg

DRUGS (9)
  1. AVONEX [Suspect]
     Indication: MULTIPLE SCLEROSIS
     Dosage: 30 UG QW IM
     Route: 030
     Dates: start: 20030101
  2. AVONEX [Suspect]
     Indication: MULTIPLE SCLEROSIS
     Dosage: 30 UG QW IM
     Route: 030
  3. AVONEX [Suspect]
     Indication: MULTIPLE SCLEROSIS
     Dosage: 30 UG QW IM
     Route: 030
  4. NORVASC [Concomitant]
  5. NEXIUM [Concomitant]
  6. GINSENG [Concomitant]
  7. OGEN [Concomitant]
  8. AMITRIPTYLINE HCL [Concomitant]
  9. DAYPRO [Concomitant]

REACTIONS (16)
  - ABASIA [None]
  - BACK PAIN [None]
  - BENIGN BREAST NEOPLASM [None]
  - BLOOD POTASSIUM DECREASED [None]
  - CORONARY ARTERY OCCLUSION [None]
  - DEPRESSION [None]
  - FALL [None]
  - FLUID RETENTION [None]
  - HEAD INJURY [None]
  - HYPERTENSION [None]
  - HYPOTENSION [None]
  - MOVEMENT DISORDER [None]
  - MUSCULOSKELETAL DISORDER [None]
  - RENAL DISORDER [None]
  - RESTLESS LEGS SYNDROME [None]
  - SPONDYLITIS [None]
